FAERS Safety Report 7173480-9 (Version None)
Quarter: 2010Q4

REPORT INFORMATION
  Report Type: 
  Country: None (occurrence: None)
  Receive Date: 20101215
  Receipt Date: 20101215
  Transmission Date: 20110411
  Serious: No
  Sender: FDA-Public Use
  Company Number: None

PATIENT
  Age: 84 Year
  Sex: Female
  Weight: 58.9676 kg

DRUGS (10)
  1. DILAUDID [Suspect]
     Indication: ARTHRALGIA
     Dosage: 0.5 - 1 MG Q1H PRN IV
     Route: 042
     Dates: start: 20101031, end: 20101102
  2. LANTUS [Interacting]
  3. LASIX [Concomitant]
  4. LOVENOX [Concomitant]
  5. THYROID [Concomitant]
  6. K-DUR [Concomitant]
  7. TIMOPTIC [Concomitant]
  8. VANCOMYCIN [Concomitant]
  9. TRAMADOL [Concomitant]
  10. ZOFRAN [Concomitant]

REACTIONS (2)
  - PANIC REACTION [None]
  - SELF INJURIOUS BEHAVIOUR [None]
